FAERS Safety Report 5649583-4 (Version None)
Quarter: 2008Q1

REPORT INFORMATION
  Report Type: 
  Country: None (occurrence: None)
  Receive Date: 20080131
  Receipt Date: 20071114
  Transmission Date: 20080703
  Serious: No
  Sender: FDA-Public Use
  Company Number: US200711003276

PATIENT
  Age: 72 Year
  Sex: Male

DRUGS (4)
  1. BYETTA(EXENATIDE) PEN, DISPOSBLE [Suspect]
     Indication: TYPE 2 DIABETES MELLITUS
     Dosage: 5 UG, 2/D, SUBCUTANEOUS; 10 UG, 2/D, SUBCUTANEOUS
     Route: 058
     Dates: start: 20071001, end: 20071101
  2. BYETTA(EXENATIDE) PEN, DISPOSBLE [Suspect]
     Indication: TYPE 2 DIABETES MELLITUS
     Dosage: 5 UG, 2/D, SUBCUTANEOUS; 10 UG, 2/D, SUBCUTANEOUS
     Route: 058
     Dates: start: 20071108
  3. METFORMIN HCL [Concomitant]
  4. LANTUS [Concomitant]

REACTIONS (2)
  - BLOOD GLUCOSE INCREASED [None]
  - DIARRHOEA [None]
